FAERS Safety Report 9505598 (Version 1)
Quarter: 2013Q1

REPORT INFORMATION
  Report Type: Spontaneous
  Country: US (occurrence: None)
  Receive Date: 20130220
  Receipt Date: 20130220
  Transmission Date: 20140127
  Serious: No
  Sender: FDA-Public Use
  Company Number: 1000041379

PATIENT
  Age: 69 Year
  Sex: Male

DRUGS (10)
  1. VIIBYRD [Suspect]
     Indication: DEPRESSION
     Dosage: 40MG (40 MG, 1 IN1 D), ORAL
     Route: 048
     Dates: start: 201211, end: 201211
  2. VIIBYRD [Suspect]
     Indication: ANXIETY
     Dosage: 40MG (40 MG, 1 IN1 D), ORAL
     Route: 048
     Dates: start: 201211, end: 201211
  3. VIIBYRD [Suspect]
     Indication: DEPRESSION
     Dosage: 10MG (10 MG, 1 IN 1 D), ORAL
     Route: 048
     Dates: start: 201211, end: 201212
  4. VIIBYRD [Suspect]
     Indication: ANXIETY
     Dosage: 10MG (10 MG, 1 IN 1 D), ORAL
     Route: 048
     Dates: start: 201211, end: 201212
  5. ASPIRIN (ACETYLSALICYLIC ACID) (ACETYLSALICYLIC ACID) [Concomitant]
  6. AMLODIPINE (AMLODIPINE) (AMLODIPINE) [Concomitant]
  7. ATENOLOL (ATENOLOL) (ATENOLOL) [Concomitant]
  8. FISH OIL (FISH OIL) (FISH OIL) [Concomitant]
  9. TRAZODONE (TRAZODONE) (TRAZODONE) [Concomitant]
  10. DEXILANT (DEXLANSOPRAZOLE) (DEXLANSOPRAZOLE) [Concomitant]

REACTIONS (3)
  - Headache [None]
  - Libido decreased [None]
  - Disturbance in attention [None]
